FAERS Safety Report 7901369-3 (Version None)
Quarter: 2011Q4

REPORT INFORMATION
  Report Type: 
  Country: None (occurrence: None)
  Receive Date: 20111108
  Receipt Date: 20111105
  Transmission Date: 20120403
  Serious: No
  Sender: FDA-Public Use
  Company Number: US-PFIZER INC-2011271527

PATIENT
  Sex: Female
  Weight: 63.492 kg

DRUGS (7)
  1. BONIVA [Concomitant]
     Indication: BONE DISORDER
     Dosage: UNK
     Route: 048
  2. CHANTIX [Suspect]
     Dosage: 1 MG, 2X/DAY
     Route: 048
     Dates: start: 20110101
  3. LEXAPRO [Concomitant]
     Dosage: 2 MG, UNK
  4. CHANTIX [Suspect]
     Indication: SMOKING CESSATION THERAPY
     Dosage: 0.5 MG,DAILY
     Route: 048
     Dates: start: 20111028, end: 20110101
  5. LIPITOR [Concomitant]
     Dosage: UNK
     Route: 048
  6. BENAZEPRIL [Concomitant]
     Indication: BLOOD PRESSURE ABNORMAL
     Dosage: UNK
  7. ANASTROZOLE [Concomitant]
     Indication: BLOOD OESTROGEN INCREASED
     Dosage: UNK

REACTIONS (2)
  - VOMITING [None]
  - NAUSEA [None]
